FAERS Safety Report 6779531-5 (Version None)
Quarter: 2010Q2

REPORT INFORMATION
  Report Type: 
  Country: None (occurrence: None)
  Receive Date: 20100618
  Receipt Date: 20100607
  Transmission Date: 20101027
  Serious: Yes (Other)
  Sender: FDA-Public Use
  Company Number: US-MYLANLABS-2009S1019807

PATIENT
  Age: 70 Year
  Sex: Female
  Weight: 90.72 kg

DRUGS (12)
  1. LEVETIRACETAM [Suspect]
     Indication: PARTIAL SEIZURES
     Route: 048
     Dates: start: 20090101, end: 20090201
  2. LEVETIRACETAM [Suspect]
     Indication: EPILEPSY
     Route: 048
     Dates: start: 20090101, end: 20090201
  3. M.V.I. [Concomitant]
     Indication: VITAMIN SUPPLEMENTATION
     Route: 048
  4. FIBER [Concomitant]
     Indication: LAXATIVE SUPPORTIVE CARE
     Route: 048
  5. MIRALAX [Concomitant]
     Indication: LAXATIVE SUPPORTIVE CARE
     Route: 048
  6. ASPIRIN [Concomitant]
     Route: 048
  7. MELOXICAM [Concomitant]
     Indication: ARTHRITIS
     Route: 048
  8. NEXIUM [Concomitant]
     Indication: GASTROOESOPHAGEAL REFLUX DISEASE
  9. LEVOXYL [Concomitant]
     Indication: HYPOTHYROIDISM
  10. MAXAIR [Concomitant]
     Indication: ASTHMA
  11. CALCIUM + VITAMIN D [Concomitant]
  12. FOLIC ACID [Concomitant]

REACTIONS (7)
  - CARDIAC ENZYMES INCREASED [None]
  - CARDIOMYOPATHY [None]
  - CONFUSIONAL STATE [None]
  - DRUG INEFFECTIVE FOR UNAPPROVED INDICATION [None]
  - MYOCARDIAL INFARCTION [None]
  - PARTIAL SEIZURES [None]
  - TRANSIENT GLOBAL AMNESIA [None]
